FAERS Safety Report 7235338-6 (Version None)
Quarter: 2011Q1

REPORT INFORMATION
  Report Type: 
  Country: None (occurrence: None)
  Receive Date: 20110120
  Receipt Date: 20110113
  Transmission Date: 20110831
  Serious: Yes (Other)
  Sender: FDA-Public Use
  Company Number: GB-GENZYME-CERZ-1001777

PATIENT
  Age: 41 Year
  Sex: Female

DRUGS (2)
  1. CEREZYME [Suspect]
     Indication: GAUCHER'S DISEASE
     Dosage: 28 U/KG, Q4W
     Route: 042
  2. CEREZYME [Suspect]
     Dosage: 120 U/KG, Q4W
     Route: 042

REACTIONS (2)
  - CHITOTRIOSIDASE INCREASED [None]
  - OSTEONECROSIS [None]
